FAERS Safety Report 14078211 (Version 1)
Quarter: 2017Q4

REPORT INFORMATION
  Report Type: Spontaneous
  Country: US (occurrence: US)
  Receive Date: 20171011
  Receipt Date: 20171011
  Transmission Date: 20180321
  Serious: Yes (Other)
  Sender: FDA-Public Use
  Company Number: None

PATIENT
  Age: 64 Year
  Sex: Male
  Weight: 103.5 kg

DRUGS (1)
  1. KETOCONAZOLE SHAMPOO [Suspect]
     Active Substance: KETOCONAZOLE
     Indication: SKIN DISORDER
     Dosage: ?          OTHER STRENGTH:FLUID OUNCES;OTHER FREQUENCY:3 X WK;?
     Route: 061
     Dates: start: 20171007, end: 20171007

REACTIONS (4)
  - Accidental exposure to product [None]
  - Dermatitis contact [None]
  - Eye irritation [None]
  - Burning sensation [None]

NARRATIVE: CASE EVENT DATE: 20171007
